FAERS Safety Report 7303807-6 (Version None)
Quarter: 2011Q1

REPORT INFORMATION
  Report Type: 
  Country: None (occurrence: None)
  Receive Date: 20110221
  Receipt Date: 20110215
  Transmission Date: 20110831
  Serious: Yes (Hospitalization, Other)
  Sender: FDA-Public Use
  Company Number: CA-ABBOTT-10P-028-0690060-00

PATIENT
  Sex: Female
  Weight: 44.946 kg

DRUGS (4)
  1. NARCOTIC [Suspect]
     Indication: PERIARTHRITIS
  2. HUMIRA [Suspect]
     Indication: CROHN'S DISEASE
     Route: 058
     Dates: start: 20071212, end: 20101001
  3. EFFEXOR [Concomitant]
     Indication: ANTIDEPRESSANT THERAPY
     Route: 048
     Dates: start: 20090201
  4. ACTONEL [Concomitant]
     Indication: OSTEOPOROSIS
     Route: 048

REACTIONS (6)
  - CONSTIPATION [None]
  - GAIT DISTURBANCE [None]
  - FAT TISSUE INCREASED [None]
  - INTESTINAL OBSTRUCTION [None]
  - ABDOMINAL PAIN UPPER [None]
  - ABDOMINAL ADHESIONS [None]
